FAERS Safety Report 14185683 (Version 2)
Quarter: 2017Q4

REPORT INFORMATION
  Report Type: Spontaneous
  Country: US (occurrence: US)
  Receive Date: 20171114
  Receipt Date: 20171129
  Transmission Date: 20180321
  Serious: Yes (Other)
  Sender: FDA-Public Use
  Company Number: US-PFIZER INC-2017486195

PATIENT
  Age: 26 Year
  Sex: Female
  Weight: 58.42 kg

DRUGS (9)
  1. DEPO-MEDROL [Suspect]
     Active Substance: METHYLPREDNISOLONE ACETATE
     Indication: SINUSITIS
     Dosage: 80 MG, SINGLE
     Route: 030
     Dates: start: 20170607, end: 20170607
  2. MEDROL DOSE PAK [Concomitant]
     Indication: INFLAMMATION
     Dosage: 4 MG, UNK
     Route: 048
     Dates: start: 20170607
  3. DEPO-MEDROL [Suspect]
     Active Substance: METHYLPREDNISOLONE ACETATE
     Indication: LOWER RESPIRATORY TRACT INFECTION
  4. AUGMENTIN [Concomitant]
     Active Substance: AMOXICILLIN\CLAVULANATE POTASSIUM
     Indication: INFECTION
     Dosage: 875MG/125MG ONE TABLET BY MOUTH TWICE A DAY
     Route: 048
     Dates: start: 20170607, end: 20170617
  5. BREO ELLIPTA [Concomitant]
     Active Substance: FLUTICASONE FUROATE\VILANTEROL TRIFENATATE
     Indication: ASTHMA
     Dosage: 200MCG/25MCG ONE INHALATION BY MOUTH DAILY
  6. DULERA [Concomitant]
     Active Substance: FORMOTEROL FUMARATE DIHYDRATE\MOMETASONE FUROATE
     Indication: ASTHMA
     Dosage: 5MCG/100MCG TWO PUFFS BY MOUTH TWICE A DAY
  7. IBUPROFEN. [Concomitant]
     Active Substance: IBUPROFEN
     Indication: DISCOMFORT
     Dosage: 200MG THREE TO FOUR TABLETS BY MOUTH EVERY SIX TO EIGHT HOURS WHEN NEEDED
     Route: 048
  8. FLOVENT DISKUS [Concomitant]
     Active Substance: FLUTICASONE PROPIONATE
     Indication: ASTHMA
     Dosage: 100MCG ONE INHALATION AS NEEDED BY MOUTH
  9. PROAIR INHALER [Concomitant]
     Active Substance: ALBUTEROL SULFATE
     Indication: ASTHMA
     Dosage: 90MCG ONE TO TWO INHALATIONS BY MOUTH EVERY FOUR TO SIX HOURS WHEN NEEDED

REACTIONS (1)
  - Muscle injury [Not Recovered/Not Resolved]

NARRATIVE: CASE EVENT DATE: 20170607
